FAERS Safety Report 14153141 (Version 1)
Quarter: 2017Q4

REPORT INFORMATION
  Report Type: Spontaneous
  Country: US (occurrence: US)
  Receive Date: 20171102
  Receipt Date: 20171102
  Transmission Date: 20180321
  Serious: Yes (Other)
  Sender: FDA-Public Use
  Company Number: US-009507513-1710USA012235

PATIENT
  Age: 67 Year
  Sex: Male

DRUGS (13)
  1. PROSCAR [Suspect]
     Active Substance: FINASTERIDE
     Indication: POLLAKIURIA
     Dosage: 5 MG ONCE A DAY
     Route: 048
     Dates: start: 2016
  2. ASCORBIC ACID. [Concomitant]
     Active Substance: ASCORBIC ACID
     Dosage: 1000MG ONE A DAY
  3. INLYTA [Suspect]
     Active Substance: AXITINIB
     Dosage: 5 MG TABLET TWICE A DAY BY MOUTH
     Route: 048
     Dates: start: 2017, end: 20170819
  4. HYDROCHLOROTHIAZIDE. [Suspect]
     Active Substance: HYDROCHLOROTHIAZIDE
     Indication: HYPERTENSION
     Dosage: 25 MG, ONCE OR TWICE A DAY
  5. MYRBETRIQ [Suspect]
     Active Substance: MIRABEGRON
     Indication: POLLAKIURIA
     Dosage: 50 MG, QD
     Dates: start: 201702
  6. OMEGA-3 MARINE TRIGLYCERIDES [Concomitant]
     Active Substance: FISH OIL
     Dosage: 100 MG ONE A DAY (TAKING FOR 10 YEARS)
  7. ATENOLOL. [Suspect]
     Active Substance: ATENOLOL
     Indication: BLOOD PRESSURE MEASUREMENT
     Dosage: 25 MG TWO TABLETS TWICE DAILY
     Route: 048
     Dates: start: 2015
  8. OMEPRAZOLE. [Concomitant]
     Active Substance: OMEPRAZOLE
     Indication: DYSPEPSIA
     Dosage: 20 MG, TAKES ONE EVERY OTHER DAY; (SINCE 10 YEARS, USED TO TAKE 1 A DAY)
  9. HYZAAR [Suspect]
     Active Substance: HYDROCHLOROTHIAZIDE\LOSARTAN POTASSIUM
     Indication: BLOOD PRESSURE MEASUREMENT
     Dosage: 50MG/12.5 MG,  BID
     Route: 048
     Dates: start: 2015
  10. CYANOCOBALAMIN. [Concomitant]
     Active Substance: CYANOCOBALAMIN
     Dosage: 1500 MCG TWO A DAY
  11. OMEPRAZOLE. [Concomitant]
     Active Substance: OMEPRAZOLE
     Indication: FLATULENCE
  12. HYZAAR [Suspect]
     Active Substance: HYDROCHLOROTHIAZIDE\LOSARTAN POTASSIUM
     Dosage: 25MG ONCE OR TWICE DAILY
     Route: 048
  13. INLYTA [Suspect]
     Active Substance: AXITINIB
     Indication: RENAL CELL CARCINOMA
     Dosage: 5 MG TABLET TWICE A DAY BY MOUTH;  DURATION: 5 TO 6 MONTHS
     Route: 048
     Dates: start: 2015

REACTIONS (4)
  - Malignant neoplasm progression [Unknown]
  - Recurrent cancer [Unknown]
  - Pollakiuria [Unknown]
  - Back pain [Unknown]

NARRATIVE: CASE EVENT DATE: 201704
